FAERS Safety Report 12079534 (Version 1)
Quarter: 2016Q1

REPORT INFORMATION
  Report Type: Spontaneous
  Country: US (occurrence: US)
  Receive Date: 20160216
  Receipt Date: 20160216
  Transmission Date: 20160526
  Serious: Yes (Other)
  Sender: FDA-Public Use
  Company Number: US-PFIZER INC-2016087338

PATIENT
  Age: 74 Year
  Sex: Female
  Weight: 83 kg

DRUGS (1)
  1. SKELAXIN [Suspect]
     Active Substance: METAXALONE
     Dosage: UNK UNK, 3X/DAY
     Route: 048

REACTIONS (5)
  - Pain [Unknown]
  - Weight decreased [Unknown]
  - Muscle spasms [Unknown]
  - Mental impairment [Unknown]
  - Body height decreased [Unknown]
